FAERS Safety Report 25643066 (Version 4)
Quarter: 2025Q3

REPORT INFORMATION
  Report Type: Report from Study
  Country: KR (occurrence: KR)
  Receive Date: 20250805
  Receipt Date: 20250918
  Transmission Date: 20251020
  Serious: Yes (Hospitalization)
  Sender: ASTELLAS
  Company Number: KR-ASTELLAS-2025-AER-042410

PATIENT
  Age: 67 Year
  Sex: Male
  Weight: 90 kg

DRUGS (23)
  1. ENFORTUMAB VEDOTIN-EJFV [Suspect]
     Active Substance: ENFORTUMAB VEDOTIN-EJFV
     Indication: Transitional cell carcinoma
     Dosage: 1.25(MG/KG)?C1D1
     Route: 042
     Dates: start: 20241231, end: 20241231
  2. ENFORTUMAB VEDOTIN-EJFV [Suspect]
     Active Substance: ENFORTUMAB VEDOTIN-EJFV
     Dosage: 1.25(MG/KG)?C1D8
     Route: 042
     Dates: start: 20250107, end: 20250107
  3. ENFORTUMAB VEDOTIN-EJFV [Suspect]
     Active Substance: ENFORTUMAB VEDOTIN-EJFV
     Dosage: 1.25(MG/KG)?C1D15
     Route: 042
     Dates: start: 20250114, end: 20250114
  4. ENFORTUMAB VEDOTIN-EJFV [Suspect]
     Active Substance: ENFORTUMAB VEDOTIN-EJFV
     Dosage: 1.25(MG/KG)?C2D1
     Route: 042
     Dates: start: 20250205, end: 20250205
  5. OPALMON [Concomitant]
     Active Substance: LIMAPROST
     Indication: Hypoaesthesia
     Dosage: ONGOING
     Route: 048
     Dates: start: 20241203
  6. OMACOR [Concomitant]
     Active Substance: OMEGA-3-ACID ETHYL ESTERS
     Indication: Prophylaxis
     Dosage: ONGOING
     Route: 048
     Dates: start: 20241203
  7. LYRICA [Concomitant]
     Active Substance: PREGABALIN
     Indication: Prophylaxis
     Dosage: ONGOING
     Route: 048
     Dates: start: 20241203
  8. TAMBOCOR [Concomitant]
     Active Substance: FLECAINIDE ACETATE
     Indication: Angina pectoris
     Dosage: ONGOING
     Route: 048
     Dates: start: 20220202
  9. ATORVASTATIN CALCIUM\EZETIMIBE [Concomitant]
     Active Substance: ATORVASTATIN CALCIUM\EZETIMIBE
     Indication: Prophylaxis
     Dosage: ONGOING
     Route: 048
     Dates: start: 20220204
  10. JARDIANCE [Concomitant]
     Active Substance: EMPAGLIFLOZIN
     Indication: Diabetes mellitus
     Dosage: ONGOING
     Route: 048
     Dates: start: 20241223
  11. METFORMIN HYDROCHLORIDE [Concomitant]
     Active Substance: METFORMIN HYDROCHLORIDE
     Indication: Diabetes mellitus
     Dosage: ONGOING
     Route: 048
     Dates: start: 20241223
  12. CARVEDILOL [Concomitant]
     Active Substance: CARVEDILOL
     Indication: Hypertension
     Dosage: ONGOING
     Route: 048
     Dates: start: 20220202
  13. VALSARTAN [Concomitant]
     Active Substance: VALSARTAN
     Indication: Angina pectoris
     Dosage: ONGOING
     Route: 048
     Dates: start: 20241008
  14. MUCOPECT [AMBROXOL HYDROCHLORIDE] [Concomitant]
     Indication: Prophylaxis
     Route: 048
     Dates: start: 20241231
  15. XARELTO [Concomitant]
     Active Substance: RIVAROXABAN
     Indication: Angina pectoris
     Dosage: ONGOING
     Route: 042
     Dates: start: 20241015
  16. DICLOMED [DICLOFENAC] [Concomitant]
     Indication: Prophylaxis
     Dosage: ONGOING
     Route: 048
     Dates: start: 20241018
  17. GASTER [CROMOGLICATE SODIUM] [Concomitant]
     Indication: Prophylaxis
     Route: 048
     Dates: start: 20241203
  18. PENIRAMIN [Concomitant]
     Indication: Prophylaxis
     Route: 042
     Dates: start: 20241203
  19. HEPARIN [Concomitant]
     Active Substance: HEPARIN SODIUM
     Indication: Prophylaxis
     Route: 042
     Dates: start: 20241223
  20. MACPERAN [METOCLOPRAMIDE] [Concomitant]
     Indication: Prophylaxis
     Dosage: ONGOING
     Route: 042
     Dates: start: 20241225
  21. TRAMADOL HYDROCHLORIDE [Concomitant]
     Active Substance: TRAMADOL HYDROCHLORIDE
     Indication: Cancer pain
     Dosage: ONGOING
     Route: 042
     Dates: start: 20241225
  22. ALFUZOSIN [Concomitant]
     Active Substance: ALFUZOSIN
     Indication: Micturition urgency
     Dosage: ONGOING
     Route: 048
     Dates: start: 20250206
  23. PROPIVERINE [Concomitant]
     Active Substance: PROPIVERINE
     Indication: Micturition urgency
     Dosage: ONGOING
     Route: 048
     Dates: start: 20250206

REACTIONS (2)
  - Oedema peripheral [Recovered/Resolved]
  - Dizziness [Recovered/Resolved]

NARRATIVE: CASE EVENT DATE: 20250210
